FAERS Safety Report 24627774 (Version 1)
Quarter: 2024Q4

REPORT INFORMATION
  Report Type: Spontaneous
  Country: US (occurrence: US)
  Receive Date: 20241116
  Receipt Date: 20241116
  Transmission Date: 20250114
  Serious: Yes (Hospitalization, Other)
  Sender: AMGEN
  Company Number: US-AMGEN-USASP2024221635

PATIENT

DRUGS (2)
  1. PREDNISONE [Suspect]
     Active Substance: PREDNISONE
     Indication: Encephalitis autoimmune
     Dosage: UNK, SLOW TAPER
     Route: 048
  2. RITUXIMAB [Suspect]
     Active Substance: RITUXIMAB
     Indication: Encephalitis autoimmune
     Dosage: UNK
     Route: 065

REACTIONS (18)
  - Unevaluable event [Unknown]
  - Seizure [Unknown]
  - Status epilepticus [Unknown]
  - Faciobrachial dystonic seizure [Unknown]
  - Brain stem syndrome [Unknown]
  - Dystonia [Unknown]
  - Mental disorder [Unknown]
  - Memory impairment [Unknown]
  - Cognitive disorder [Unknown]
  - Magnetic resonance imaging head abnormal [Unknown]
  - Asthenia [Unknown]
  - Gait disturbance [Unknown]
  - Ataxia [Unknown]
  - Dyskinesia [Unknown]
  - Language disorder [Unknown]
  - Memory impairment [Unknown]
  - Mental disorder [Unknown]
  - Off label use [Unknown]
